FAERS Safety Report 6177574-6 (Version None)
Quarter: 2009Q2

REPORT INFORMATION
  Report Type: 
  Country: None (occurrence: None)
  Receive Date: 20090504
  Receipt Date: 20081204
  Transmission Date: 20091009
  Serious: No
  Sender: FDA-Public Use
  Company Number: US-ALEXION-A200800394

PATIENT
  Sex: Female

DRUGS (10)
  1. SOLIRIS [Suspect]
     Indication: PAROXYSMAL NOCTURNAL HAEMOGLOBINURIA
     Dosage: 600 MG, UNK
     Route: 042
     Dates: start: 20080909, end: 20080101
  2. SOLIRIS [Suspect]
     Dosage: 900 MG, Q2W
     Route: 042
     Dates: start: 20081007
  3. METFORMIN HCL [Concomitant]
     Indication: BLOOD GLUCOSE INCREASED
     Dosage: UNK
     Route: 048
  4. TIMOLOL MALEATE [Concomitant]
     Indication: HEADACHE
     Dosage: 5 MG, BID
     Route: 048
  5. NORTRIPTYLINE HCL [Concomitant]
     Dosage: UNK
     Route: 048
  6. PERCOCET [Concomitant]
     Dosage: UNK
     Route: 048
  7. METOCLOPRAMIDE [Concomitant]
     Indication: HEADACHE
     Dosage: UNK
     Route: 048
  8. FOLIC ACID [Concomitant]
     Dosage: UNK
     Route: 048
  9. IRON [Concomitant]
     Dosage: UNK
     Route: 048
  10. ALBUTEROL [Concomitant]
     Dosage: UNK

REACTIONS (1)
  - WEIGHT INCREASED [None]
